FAERS Safety Report 5223926-8 (Version None)
Quarter: 2007Q1

REPORT INFORMATION
  Report Type: 
  Country: None (occurrence: None)
  Receive Date: 20070130
  Receipt Date: 20070123
  Transmission Date: 20070707
  Serious: Yes (Hospitalization, Disabling)
  Sender: FDA-Public Use
  Company Number: GB-ROCHE-460840

PATIENT
  Age: 37 Year
  Sex: Female
  Weight: 140 kg

DRUGS (3)
  1. XENICAL [Suspect]
     Indication: OBESITY
     Route: 048
     Dates: start: 20060523, end: 20060722
  2. CO-CODAMOL [Concomitant]
     Indication: BACK PAIN
     Dosage: CO-CODAMOL STRENGTH REPORTED AS 8/500
     Route: 048
     Dates: start: 20060523
  3. DICLOFENAC SODIUM [Concomitant]
     Indication: BACK PAIN
     Route: 048
     Dates: start: 20060523

REACTIONS (1)
  - PANCREATITIS ACUTE [None]
